FAERS Safety Report 10097137 (Version 2)
Quarter: 2014Q2

REPORT INFORMATION
  Report Type: Report from Study
  Country: BR (occurrence: BR)
  Receive Date: 20140422
  Receipt Date: 20140515
  Transmission Date: 20141212
  Serious: Yes (Other)
  Sender: FDA-Public Use
  Company Number: PHHY2014BR047718

PATIENT
  Age: 46 Year
  Sex: Female

DRUGS (4)
  1. FORASEQ [Suspect]
     Indication: ASTHMA
     Dosage: 4 DF, BID (2 CAPSULES OF TREATMENT 1 AND 2 CAPSULES OF TREATMENT 2)
     Route: 055
  2. FORASEQ [Suspect]
     Indication: BRONCHITIS
     Dosage: 2 DF, QD
     Route: 055
     Dates: start: 201401
  3. CERAZETTE [Suspect]
     Indication: MENSTRUAL DISORDER
     Dosage: 1 DF, DAILY
  4. CERAZETTE [Suspect]
     Indication: OVARIAN DISORDER

REACTIONS (21)
  - Asthma [Recovered/Resolved]
  - Dyspnoea [Recovered/Resolved]
  - Emotional disorder [Recovered/Resolved]
  - Affective disorder [Recovered/Resolved]
  - Weight increased [Not Recovered/Not Resolved]
  - Visual acuity reduced [Not Recovered/Not Resolved]
  - Menstrual disorder [Not Recovered/Not Resolved]
  - Rhinitis [Unknown]
  - Nasal discomfort [Unknown]
  - Influenza [Recovering/Resolving]
  - Immunodeficiency [Recovering/Resolving]
  - Peripheral swelling [Not Recovered/Not Resolved]
  - Palpitations [Unknown]
  - Wrong drug administered [Unknown]
  - Nervousness [Recovered/Resolved]
  - Dysphonia [Recovering/Resolving]
  - Tremor [Recovered/Resolved]
  - Heart rate increased [Recovered/Resolved]
  - Headache [Recovered/Resolved]
  - Drug ineffective [Unknown]
  - Fatigue [Unknown]
